FAERS Safety Report 5642380-5 (Version None)
Quarter: 2008Q1

REPORT INFORMATION
  Report Type: 
  Country: None (occurrence: None)
  Receive Date: 20080227
  Receipt Date: 20080227
  Transmission Date: 20080703
  Serious: Yes (Hospitalization)
  Sender: FDA-Public Use
  Company Number: None

PATIENT
  Sex: Male
  Weight: 77.1115 kg

DRUGS (6)
  1. COMBIVIR [Suspect]
     Indication: HIV TEST POSITIVE
     Dosage: ONE TIME PO BID PRIOR TO ADMISSION
     Route: 048
  2. KALETRA [Concomitant]
  3. COLACE [Concomitant]
  4. NEPHROVITE [Concomitant]
  5. RENAGEL [Concomitant]
  6. NIFEDIPINE [Concomitant]

REACTIONS (2)
  - ANAEMIA MACROCYTIC [None]
  - GASTROINTESTINAL HAEMORRHAGE [None]
